FAERS Safety Report 7172907-6 (Version None)
Quarter: 2010Q4

REPORT INFORMATION
  Report Type: 
  Country: None (occurrence: None)
  Receive Date: 20101219
  Receipt Date: 20100216
  Transmission Date: 20110411
  Serious: No
  Sender: FDA-Public Use
  Company Number: US-AMGEN-KDL393305

PATIENT

DRUGS (2)
  1. ENBREL [Suspect]
     Indication: RHEUMATOID ARTHRITIS
     Dosage: 25 MG, 3 TIMES/WK
     Route: 058
     Dates: start: 20030906
  2. LEFLUNOMIDE [Concomitant]
     Dosage: 20 MG, QD
     Route: 048

REACTIONS (7)
  - ARTHRALGIA [None]
  - ELBOW OPERATION [None]
  - INJECTION SITE ERYTHEMA [None]
  - INJECTION SITE PRURITUS [None]
  - INJECTION SITE URTICARIA [None]
  - PAIN IN EXTREMITY [None]
  - WEIGHT DECREASED [None]
